FAERS Safety Report 4390268-2 (Version None)
Quarter: 2004Q2

REPORT INFORMATION
  Report Type: 
  Country: None (occurrence: None)
  Receive Date: 20040630
  Receipt Date: 20040615
  Transmission Date: 20050107
  Serious: Yes (Hospitalization)
  Sender: FDA-Public Use
  Company Number: SE-2004-027564

PATIENT
  Age: 76 Year
  Sex: Female

DRUGS (3)
  1. SOTALOL HCL [Suspect]
     Indication: ESSENTIAL HYPERTENSION
     Dosage: 80 MG, ORAL
     Route: 048
     Dates: start: 19950101, end: 20030601
  2. LASIX [Concomitant]
  3. TROMBYL (ACETYLSALICYLIC ACID) [Concomitant]

REACTIONS (8)
  - DIZZINESS [None]
  - ELECTROCARDIOGRAM QT PROLONGED [None]
  - FALL [None]
  - LOSS OF CONSCIOUSNESS [None]
  - PUPIL FIXED [None]
  - RESPIRATORY DISORDER [None]
  - VENTRICULAR FIBRILLATION [None]
  - VENTRICULAR TACHYCARDIA [None]
